FAERS Safety Report 24837579 (Version 1)
Quarter: 2025Q1

REPORT INFORMATION
  Report Type: Spontaneous
  Country: GB (occurrence: GB)
  Receive Date: 20250113
  Receipt Date: 20250113
  Transmission Date: 20250409
  Serious: Yes (Hospitalization, Other)
  Sender: ORGANON
  Company Number: None

PATIENT
  Age: 8 Year

DRUGS (1)
  1. MONTELUKAST SODIUM [Suspect]
     Active Substance: MONTELUKAST SODIUM

REACTIONS (6)
  - Emotional distress [Unknown]
  - Hallucination, visual [Unknown]
  - Confusional state [Unknown]
  - Depressed mood [Unknown]
  - Micturition urgency [Unknown]
  - Anger [Unknown]
